FAERS Safety Report 25644616 (Version 1)
Quarter: 2025Q3

REPORT INFORMATION
  Report Type: Spontaneous
  Country: CN (occurrence: CN)
  Receive Date: 20250805
  Receipt Date: 20250805
  Transmission Date: 20251021
  Serious: Yes (Other)
  Sender: PFIZER
  Company Number: CN-PFIZER INC-PV202500091727

PATIENT
  Age: 67 Year
  Sex: Female

DRUGS (2)
  1. CYTARABINE [Suspect]
     Active Substance: CYTARABINE
     Indication: Myeloid leukaemia
     Dosage: 0.02 G, 2X/DAY (Q12H)
     Route: 058
     Dates: start: 20250720, end: 20250726
  2. DECITABINE [Suspect]
     Active Substance: DECITABINE
     Indication: Myeloid leukaemia
     Dosage: 10 MG, 1X/DAY
     Route: 041
     Dates: start: 20250720, end: 20250724

REACTIONS (3)
  - Platelet production decreased [Recovering/Resolving]
  - Haemoglobin decreased [Recovering/Resolving]
  - Pyrexia [Recovering/Resolving]

NARRATIVE: CASE EVENT DATE: 20250701
